FAERS Safety Report 4831655-5 (Version None)
Quarter: 2005Q4

REPORT INFORMATION
  Report Type: 
  Country: None (occurrence: None)
  Receive Date: 20051116
  Receipt Date: 20050927
  Transmission Date: 20060501
  Serious: Yes (Hospitalization)
  Sender: FDA-Public Use
  Company Number: 2005137041

PATIENT
  Age: 64 Year
  Sex: Female

DRUGS (3)
  1. IRINOTECAN HCL [Suspect]
     Indication: ILL-DEFINED DISORDER
     Dosage: 120 MG, INTRAVENOUS
     Route: 042
     Dates: end: 20050309
  2. TEGAFUR (TEGAFUR) [Suspect]
     Indication: ILL-DEFINED DISORDER
  3. LOXOPROFEN SODIUM (LOXOPROFEN SODIUM) [Suspect]
     Indication: ILL-DEFINED DISORDER

REACTIONS (1)
  - INTERSTITIAL LUNG DISEASE [None]
